FAERS Safety Report 4855538-X (Version None)
Quarter: 2005Q4

REPORT INFORMATION
  Report Type: 
  Country: None (occurrence: None)
  Receive Date: 20051216
  Receipt Date: 20051019
  Transmission Date: 20060501
  Serious: Yes (Life-Threatening, Hospitalization)
  Sender: FDA-Public Use
  Company Number: JP-BRISTOL-MYERS SQUIBB COMPANY-13152277

PATIENT
  Age: 53 Year
  Sex: Female

DRUGS (5)
  1. MITOMYCIN [Suspect]
     Indication: OVARIAN CANCER
     Route: 042
     Dates: start: 20050221, end: 20050620
  2. IRINOTECAN HCL [Concomitant]
     Indication: OVARIAN CANCER
     Route: 042
     Dates: start: 20050221, end: 20050620
  3. SOLU-MEDROL [Concomitant]
     Route: 042
     Dates: start: 20050709, end: 20050711
  4. PREDNISOLONE [Concomitant]
     Route: 048
     Dates: start: 20050712, end: 20050926
  5. OMEPRAL [Concomitant]
     Route: 048
     Dates: start: 20050712, end: 20050926

REACTIONS (4)
  - CARDIOMEGALY [None]
  - HAEMOLYTIC URAEMIC SYNDROME [None]
  - INTERSTITIAL LUNG DISEASE [None]
  - PERICARDIAL EFFUSION [None]
